FAERS Safety Report 20121412 (Version 1)
Quarter: 2021Q4

REPORT INFORMATION
  Report Type: Spontaneous
  Country: US (occurrence: None)
  Receive Date: 20211125
  Receipt Date: 20211125
  Transmission Date: 20220303
  Serious: Yes (Hospitalization)
  Sender: FDA-Public Use
  Company Number: None

PATIENT
  Sex: Male
  Weight: 69.9 kg

DRUGS (3)
  1. CISPLATIN [Suspect]
     Active Substance: CISPLATIN
     Indication: Product used for unknown indication
     Dates: start: 20201224, end: 20210311
  2. ETOPOSIDE [Suspect]
     Active Substance: ETOPOSIDE
     Indication: Product used for unknown indication
     Dates: start: 20201224, end: 20210301
  3. BLEOMYCIN [Suspect]
     Active Substance: BLEOMYCIN SULFATE
     Indication: Product used for unknown indication
     Dosage: OTHER STRENGTH : 90 UNITS ;?
     Dates: start: 20201224, end: 20210311

REACTIONS (7)
  - Pain in extremity [None]
  - Fatigue [None]
  - Back pain [None]
  - Acute promyelocytic leukaemia [None]
  - Pain in extremity [None]
  - Platelet count decreased [None]
  - Blast cells present [None]

NARRATIVE: CASE EVENT DATE: 20211118
